FAERS Safety Report 8604510-2 (Version None)
Quarter: 2012Q3

REPORT INFORMATION
  Report Type: 
  Country: None (occurrence: None)
  Receive Date: 20120820
  Receipt Date: 20120807
  Transmission Date: 20120928
  Serious: Yes (Death)
  Sender: FDA-Public Use
  Company Number: DE-EISAI INC-E7389-02872-SOL-DE

PATIENT
  Sex: Female

DRUGS (1)
  1. HALAVEN [Suspect]
     Dosage: 1.4 MG/M2, INCREASED TO 12.6 MG
     Route: 041
     Dates: start: 20110923, end: 20120113

REACTIONS (1)
  - POLYNEUROPATHY [None]
